FAERS Safety Report 7105059-9 (Version None)
Quarter: 2010Q4

REPORT INFORMATION
  Report Type: 
  Country: None (occurrence: None)
  Receive Date: 20101116
  Receipt Date: 20101112
  Transmission Date: 20110411
  Serious: Yes (Death)
  Sender: FDA-Public Use
  Company Number: JP-SANOFI-AVENTIS-2010SA066979

PATIENT
  Age: 65 Year
  Sex: Male

DRUGS (2)
  1. TAXOTERE [Suspect]
     Indication: LUNG ADENOCARCINOMA STAGE IV
     Dates: start: 20100106, end: 20100106
  2. TAXOTERE [Suspect]
     Dates: start: 20100127, end: 20100127

REACTIONS (7)
  - BLOOD LACTATE DEHYDROGENASE INCREASED [None]
  - CELL MARKER INCREASED [None]
  - DYSPNOEA [None]
  - INTERSTITIAL LUNG DISEASE [None]
  - PYREXIA [None]
  - RESPIRATORY FAILURE [None]
  - WHITE BLOOD CELL COUNT INCREASED [None]
